FAERS Safety Report 5499891-5 (Version None)
Quarter: 2007Q4

REPORT INFORMATION
  Report Type: 
  Country: None (occurrence: None)
  Receive Date: 20071026
  Receipt Date: 20071016
  Transmission Date: 20080405
  Serious: Yes (Other)
  Sender: FDA-Public Use
  Company Number: PT-PFIZER INC-2007086833

PATIENT
  Age: 49 Year
  Sex: Male

DRUGS (2)
  1. VFEND [Suspect]
     Indication: ASPERGILLOSIS
     Route: 048
  2. CORTICOSTEROIDS [Concomitant]
     Route: 048

REACTIONS (4)
  - GENERALISED ERYTHEMA [None]
  - HEADACHE [None]
  - PRURITUS GENERALISED [None]
  - PYREXIA [None]
